FAERS Safety Report 18025836 (Version 1)
Quarter: 2020Q3

REPORT INFORMATION
  Report Type: Spontaneous
  Country: BR (occurrence: BR)
  Receive Date: 20200715
  Receipt Date: 20200715
  Transmission Date: 20201103
  Serious: Yes (Hospitalization, Other)
  Sender: FDA-Public Use
  Company Number: BR-GLAXOSMITHKLINE-BR2020GSK121968

PATIENT
  Age: 37 Year
  Sex: Female

DRUGS (2)
  1. IBUPROFEN. [Suspect]
     Active Substance: IBUPROFEN
     Indication: FACIAL NEURALGIA
     Dosage: UNK
  2. LAMOTRIGINE. [Suspect]
     Active Substance: LAMOTRIGINE
     Indication: FACIAL NEURALGIA
     Dosage: UNK

REACTIONS (13)
  - Lip disorder [Recovered/Resolved]
  - Dyskinesia [Recovered/Resolved]
  - Skin wound [Recovered/Resolved]
  - Adhesion [Recovered/Resolved]
  - Toxic epidermal necrolysis [Recovered/Resolved with Sequelae]
  - Skin hyperpigmentation [Unknown]
  - Self-medication [Unknown]
  - Pruritus [Recovered/Resolved]
  - Dermatitis bullous [Recovered/Resolved with Sequelae]
  - Neutropenia [Unknown]
  - Scar [Unknown]
  - Lymphadenopathy [Recovered/Resolved]
  - Oral mucosal blistering [Recovered/Resolved with Sequelae]
